FAERS Safety Report 6115056-8 (Version None)
Quarter: 2009Q1

REPORT INFORMATION
  Report Type: 
  Country: None (occurrence: None)
  Receive Date: 20090313
  Receipt Date: 20090305
  Transmission Date: 20090719
  Serious: Yes (Life-Threatening, Hospitalization, Disabling)
  Sender: FDA-Public Use
  Company Number: B0552622A

PATIENT
  Age: 75 Year
  Sex: Male

DRUGS (4)
  1. MALARONE [Suspect]
     Indication: DRUG USE FOR UNKNOWN INDICATION
     Route: 048
     Dates: start: 20081118, end: 20081125
  2. MAREVAN [Suspect]
     Indication: ATRIAL FIBRILLATION
     Route: 048
     Dates: start: 19970101, end: 20081125
  3. GLUCOSAMINE [Concomitant]
     Dates: start: 20080701, end: 20081125
  4. SOTALOL HCL [Concomitant]
     Dates: start: 19970101

REACTIONS (3)
  - DRUG INTERACTION [None]
  - INTERNATIONAL NORMALISED RATIO INCREASED [None]
  - SUBDURAL HAEMATOMA [None]
